FAERS Safety Report 19491085 (Version 1)
Quarter: 2021Q3

REPORT INFORMATION
  Report Type: Spontaneous
  Country: DE (occurrence: DE)
  Receive Date: 20210705
  Receipt Date: 20210705
  Transmission Date: 20211014
  Serious: Yes (Hospitalization)
  Sender: FDA-Public Use
  Company Number: DE-TEVA-2021-DE-1928391

PATIENT
  Age: 78 Year
  Sex: Male
  Weight: 102 kg

DRUGS (8)
  1. EDOXABAN [Concomitant]
     Active Substance: EDOXABAN TOSYLATE
     Dosage: 30 MILLIGRAM DAILY; 1?0?0?0
     Route: 048
  2. RAMIPRIL. [Suspect]
     Active Substance: RAMIPRIL
     Dosage: 5 MILLIGRAM DAILY; 1?0?0?0, SUSTAINED?RELEASE TABLETS
     Route: 048
  3. FOLSAURE ABZ 5MG [Concomitant]
     Dosage: 5 MILLIGRAM DAILY; 1?0?0?0
     Route: 048
  4. SPIRONOLACTONE. [Suspect]
     Active Substance: SPIRONOLACTONE
     Dosage: .5 DOSAGE FORMS DAILY; 50 MG, 0.5?0?0?0, TABLETS
     Route: 048
  5. AMLODIPIN [Concomitant]
     Active Substance: AMLODIPINE BESYLATE
     Dosage: 5 MILLIGRAM DAILY; 1?0?0?0
     Route: 048
  6. PANTOPRAZOL [Concomitant]
     Active Substance: PANTOPRAZOLE SODIUM
     Dosage: 40 MILLIGRAM DAILY; 1?0?0?0
     Route: 048
  7. METOPROLOL. [Concomitant]
     Active Substance: METOPROLOL
     Dosage: .5 DOSAGE FORMS DAILY; 95 MG, 0.5?0?0?0, SUSTAINED?RELEASE TABLETS
     Route: 048
  8. TRIMBOW 87MIKROGRAMM/5MIKROGRAMM/9MIKROGRAMM [Concomitant]
     Dosage: 4 DOSAGE FORMS DAILY; 2?0?2?0, METERED DOSE INHALER
     Route: 055

REACTIONS (5)
  - Fluid intake reduced [Unknown]
  - Dyspnoea [Unknown]
  - General physical health deterioration [Unknown]
  - Hypophagia [Unknown]
  - Electrolyte imbalance [Unknown]
